FAERS Safety Report 9057448 (Version 2)
Quarter: 2013Q2

REPORT INFORMATION
  Report Type: Report from Study
  Country: CA (occurrence: CA)
  Receive Date: 20130204
  Receipt Date: 20130613
  Transmission Date: 20140414
  Serious: Yes (Hospitalization)
  Sender: FDA-Public Use
  Company Number: CA-PFIZER INC-2013022402

PATIENT
  Age: 45 Year
  Sex: Female

DRUGS (11)
  1. SUNITINIB MALATE [Suspect]
     Indication: CLEAR CELL SARCOMA OF SOFT TISSUE
     Dosage: 50 MG, CYCLIC (6 WEEK CYCLE)
     Route: 048
     Dates: start: 20121029
  2. METOCLOPRAMIDE [Concomitant]
     Indication: PROPHYLAXIS OF NAUSEA AND VOMITING
     Dosage: UNK
     Dates: start: 20111116
  3. MORPHINE [Concomitant]
     Indication: TUMOUR PAIN
     Dosage: UNK
     Dates: start: 20111116
  4. RABEPRAZOLE [Concomitant]
     Indication: DYSPEPSIA
     Dosage: UNK
     Dates: start: 20120511, end: 20130109
  5. STATEX [Concomitant]
     Indication: TUMOUR PAIN
     Dosage: UNK
     Dates: start: 20111116
  6. SENOKOT [Concomitant]
     Indication: CONSTIPATION PROPHYLAXIS
     Dosage: UNK
     Dates: start: 20111116
  7. LACHYDRIN [Concomitant]
     Indication: DRY SKIN PROPHYLAXIS
     Dosage: UNK
     Dates: start: 20121102
  8. AMLODIPINE [Concomitant]
     Indication: HYPERTENSION
     Dosage: UNK
     Dates: start: 20121105
  9. METOPROLOL [Concomitant]
     Indication: HYPERTENSION
     Dosage: UNK
     Dates: start: 20121120
  10. SLOW-K [Concomitant]
     Indication: HYPOKALAEMIA
     Dosage: UNK
     Dates: start: 20121212
  11. L-THYROXIN [Concomitant]
     Indication: HYPOTHYROIDISM
     Dosage: UNK
     Dates: start: 20121212

REACTIONS (4)
  - Gastritis [Recovered/Resolved]
  - Fatigue [Recovered/Resolved]
  - Renal failure acute [Recovered/Resolved]
  - Generalised oedema [Recovered/Resolved]
